FAERS Safety Report 17437200 (Version 1)
Quarter: 2020Q1

REPORT INFORMATION
  Report Type: Spontaneous
  Country: SK (occurrence: SK)
  Receive Date: 20200219
  Receipt Date: 20200219
  Transmission Date: 20200409
  Serious: Yes (Death)
  Sender: FDA-Public Use
  Company Number: SK-JNJFOC-20200211564

PATIENT
  Age: 61 Year
  Sex: Male

DRUGS (1)
  1. STELARA [Suspect]
     Active Substance: USTEKINUMAB
     Indication: PSORIASIS
     Route: 058
     Dates: start: 20100531, end: 20190529

REACTIONS (4)
  - Metastases to lung [Fatal]
  - Metastases to liver [Fatal]
  - Lymphadenopathy [Fatal]
  - Pancreatic carcinoma [Fatal]
